FAERS Safety Report 21895283 (Version 1)
Quarter: 2023Q1

REPORT INFORMATION
  Report Type: Spontaneous
  Country: BE (occurrence: BE)
  Receive Date: 20230123
  Receipt Date: 20230123
  Transmission Date: 20230417
  Serious: Yes (Disabling)
  Sender: FDA-Public Use
  Company Number: None

PATIENT
  Age: 47 Year
  Sex: Male

DRUGS (2)
  1. OZEMPIC [Suspect]
     Active Substance: SEMAGLUTIDE
     Indication: Diabetes mellitus
     Dosage: 1 DF, QW
     Route: 058
     Dates: start: 20220317
  2. TENOXICAM [Concomitant]
     Active Substance: TENOXICAM
     Indication: Product used for unknown indication
     Dosage: 20 MG

REACTIONS (1)
  - Myalgia [Not Recovered/Not Resolved]
